FAERS Safety Report 5221893-4 (Version None)
Quarter: 2007Q1

REPORT INFORMATION
  Report Type: 
  Country: None (occurrence: None)
  Receive Date: 20070126
  Receipt Date: 20070126
  Transmission Date: 20070707
  Serious: Yes (Other)
  Sender: FDA-Public Use
  Company Number: None

PATIENT
  Age: 32 Year
  Sex: Female
  Weight: 74.8435 kg

DRUGS (4)
  1. PAXIL CR [Suspect]
     Indication: AGITATION
     Dosage: 1 TABLET   ONCE A DAY   PO
     Route: 048
     Dates: start: 20020101, end: 20050101
  2. PAXIL CR [Suspect]
     Indication: PANIC ATTACK
     Dosage: 1 TABLET   ONCE A DAY   PO
     Route: 048
     Dates: start: 20020101, end: 20050101
  3. PAXIL CR [Suspect]
     Indication: PREMENSTRUAL SYNDROME
     Dosage: 1 TABLET   ONCE A DAY   PO
     Route: 048
     Dates: start: 20020101, end: 20050101
  4. PAXIL CR [Suspect]
     Dosage: 1 TABLET   ONCE DAILY   PO
     Route: 048
     Dates: start: 20060101

REACTIONS (5)
  - ABNORMAL BEHAVIOUR [None]
  - AGGRESSION [None]
  - AGITATION [None]
  - DEPRESSED MOOD [None]
  - INSOMNIA [None]
